FAERS Safety Report 4976992-9 (Version None)
Quarter: 2006Q2

REPORT INFORMATION
  Report Type: 
  Country: None (occurrence: None)
  Receive Date: 20060419
  Receipt Date: 20060406
  Transmission Date: 20061013
  Serious: Yes (Other)
  Sender: FDA-Public Use
  Company Number: US-AVENTIS-200613371US

PATIENT
  Sex: Male

DRUGS (5)
  1. LANTUS [Suspect]
     Indication: DIABETES MELLITUS NON-INSULIN-DEPENDENT
     Dosage: DOSE UNIT: UNITS
     Route: 051
     Dates: start: 20050901
  2. OPTICLIK (INSULIN INJECTION PEN) [Suspect]
     Indication: DIABETES MELLITUS NON-INSULIN-DEPENDENT
     Dosage: DOSE: UNK
     Dates: start: 20050901
  3. METFORMIN [Concomitant]
     Dosage: DOSE: UNKNOWN
  4. AVANDIA [Concomitant]
     Dosage: DOSE: UNKNOWN
  5. PRECOSE [Concomitant]
     Dosage: DOSE: UNKNOWN

REACTIONS (2)
  - INJECTION SITE MASS [None]
  - URINARY TRACT OBSTRUCTION [None]
